FAERS Safety Report 18277335 (Version 1)
Quarter: 2020Q3

REPORT INFORMATION
  Report Type: Spontaneous
  Country: US (occurrence: US)
  Receive Date: 20200917
  Receipt Date: 20200917
  Transmission Date: 20201103
  Serious: Yes (Death, Hospitalization)
  Sender: FDA-Public Use
  Company Number: US-JNJFOC-A-NJ2020-206801

PATIENT
  Age: 19 Month
  Sex: Female

DRUGS (10)
  1. CYPROHEPTAD [Concomitant]
  2. BUDESONIDE. [Concomitant]
     Active Substance: BUDESONIDE
  3. HYDROCHLOROTHIAZIDE. [Concomitant]
     Active Substance: HYDROCHLOROTHIAZIDE
  4. TRACLEER [Suspect]
     Active Substance: BOSENTAN
     Indication: PULMONARY HYPERTENSION
     Dosage: 6.25 ML
     Route: 050
     Dates: start: 20200529
  5. DIURIL [Concomitant]
     Active Substance: CHLOROTHIAZIDE
  6. FERROUS SULFATE. [Concomitant]
     Active Substance: FERROUS SULFATE
  7. TRACLEER [Suspect]
     Active Substance: BOSENTAN
     Dosage: 3.5 ML, BID
     Route: 050
     Dates: start: 20200529
  8. CAROSPIR [Concomitant]
     Active Substance: SPIRONOLACTONE
  9. FAMOTIDINE. [Concomitant]
     Active Substance: FAMOTIDINE
  10. POTASSIUM CHLORIDE. [Concomitant]
     Active Substance: POTASSIUM CHLORIDE

REACTIONS (5)
  - Death [Fatal]
  - Incorrect route of product administration [Unknown]
  - Unevaluable event [Not Recovered/Not Resolved]
  - Off label use [Unknown]
  - Tracheal disorder [Unknown]

NARRATIVE: CASE EVENT DATE: 20200630
